FAERS Safety Report 21004152 (Version 1)
Quarter: 2022Q2

REPORT INFORMATION
  Report Type: Spontaneous
  Country: FR (occurrence: FR)
  Receive Date: 20220624
  Receipt Date: 20220624
  Transmission Date: 20220721
  Serious: Yes (Other)
  Sender: FDA-Public Use
  Company Number: FR-009507513-2206FRA006283

PATIENT
  Age: 50 Year
  Sex: Male

DRUGS (1)
  1. KEYTRUDA [Suspect]
     Active Substance: PEMBROLIZUMAB
     Indication: Lung neoplasm malignant

REACTIONS (6)
  - Pulmonary fistula [Unknown]
  - Dermabrasion [Unknown]
  - Incision site discharge [Unknown]
  - Blood thyroid stimulating hormone decreased [Unknown]
  - Dry skin [Unknown]
  - Arthritis [Unknown]
